FAERS Safety Report 9462574 (Version 1)
Quarter: 2013Q3

REPORT INFORMATION
  Report Type: Spontaneous
  Country: FR (occurrence: FR)
  Receive Date: 20130816
  Receipt Date: 20130816
  Transmission Date: 20140515
  Serious: Yes (Death, Hospitalization, Other)
  Sender: FDA-Public Use
  Company Number: FR-BRISTOL-MYERS SQUIBB COMPANY-19177203

PATIENT
  Age: 85 Year
  Sex: Male

DRUGS (2)
  1. COUMADINE [Suspect]
     Route: 048
     Dates: start: 2009
  2. SEROPLEX [Concomitant]

REACTIONS (3)
  - Subdural haematoma [Fatal]
  - Intraventricular haemorrhage [Fatal]
  - Fall [Unknown]
